FAERS Safety Report 11466574 (Version 1)
Quarter: 2015Q3

REPORT INFORMATION
  Report Type: Spontaneous
  Country: US (occurrence: US)
  Receive Date: 20150907
  Receipt Date: 20150907
  Transmission Date: 20151125
  Serious: No
  Sender: FDA-Public Use
  Company Number: GXBR2015US001747

PATIENT
  Sex: Female
  Weight: 63.49 kg

DRUGS (1)
  1. NYSTATIN+TRIAMCINOLONE [Suspect]
     Active Substance: NYSTATIN\TRIAMCINOLONE ACETONIDE
     Indication: VAGINAL INFECTION
     Dosage: UNK DF, BID
     Route: 061
     Dates: start: 20150703, end: 20150710

REACTIONS (1)
  - Hypoaesthesia [Not Recovered/Not Resolved]
